FAERS Safety Report 7388550-X (Version None)
Quarter: 2011Q2

REPORT INFORMATION
  Report Type: 
  Country: None (occurrence: None)
  Receive Date: 20110401
  Receipt Date: 20110329
  Transmission Date: 20111010
  Serious: Yes (Disabling)
  Sender: FDA-Public Use
  Company Number: FR-PFIZER INC-2011069090

PATIENT
  Age: 40 Year
  Sex: Male

DRUGS (4)
  1. LYRICA [Concomitant]
     Dosage: 50 MG, 2X/DAY
     Route: 048
     Dates: start: 20090301
  2. RIVOTRIL [Concomitant]
     Dosage: 5 GTT, 1X/DAY
     Route: 048
     Dates: start: 20090301
  3. REBIF [Concomitant]
     Dosage: 44 UG THREE TIMES A WEEK
     Route: 058
     Dates: start: 20091201
  4. SOLU-MEDROL [Suspect]
     Dosage: 3 G, SINGLE
     Route: 040
     Dates: start: 20080801

REACTIONS (1)
  - OSTEONECROSIS [None]
